FAERS Safety Report 4596187-0 (Version None)
Quarter: 2005Q1

REPORT INFORMATION
  Report Type: 
  Country: None (occurrence: None)
  Receive Date: 20050225
  Receipt Date: 20050214
  Transmission Date: 20050727
  Serious: Yes (Death, Other)
  Sender: FDA-Public Use
  Company Number: USA-2005-0018819

PATIENT
  Age: 49 Year
  Sex: Male

DRUGS (3)
  1. OXYCONTIN [Suspect]
     Indication: PAIN
  2. XANAX [Suspect]
     Indication: PAIN
  3. LORTAB [Suspect]
     Indication: PAIN

REACTIONS (4)
  - DRUG ABUSER [None]
  - DRUG DEPENDENCE [None]
  - MYOCARDIAL INFARCTION [None]
  - OVERDOSE [None]
